FAERS Safety Report 10309759 (Version 2)
Quarter: 2014Q3

REPORT INFORMATION
  Report Type: Spontaneous
  Country: US (occurrence: US)
  Receive Date: 20140717
  Receipt Date: 20140911
  Transmission Date: 20150326
  Serious: Yes (Hospitalization)
  Sender: FDA-Public Use
  Company Number: US-BIOGENIDEC-2014BI069656

PATIENT
  Age: 25 Year
  Sex: Female

DRUGS (4)
  1. BACLOFEN. [Concomitant]
     Active Substance: BACLOFEN
  2. AVONEX [Suspect]
     Active Substance: INTERFERON BETA-1A
     Indication: PROGRESSIVE MULTIPLE SCLEROSIS
     Route: 030
     Dates: start: 20120112, end: 201201
  3. GABAPENTIN. [Concomitant]
     Active Substance: GABAPENTIN
  4. LYRICA [Concomitant]
     Active Substance: PREGABALIN

REACTIONS (2)
  - Influenza like illness [Recovered/Resolved]
  - Gait disturbance [Unknown]

NARRATIVE: CASE EVENT DATE: 201201
